FAERS Safety Report 17978325 (Version 1)
Quarter: 2020Q3

REPORT INFORMATION
  Report Type: Spontaneous
  Country: US (occurrence: US)
  Receive Date: 20200703
  Receipt Date: 20200703
  Transmission Date: 20201103
  Serious: Yes (Other)
  Sender: FDA-Public Use
  Company Number: US-GW PHARMA-202006USGW02340

PATIENT

DRUGS (1)
  1. EPIDIOLEX [Suspect]
     Active Substance: CANNABIDIOL
     Indication: SEIZURE
     Dosage: 140 MILLIGRAM, BID
     Route: 048
     Dates: start: 202002, end: 202006

REACTIONS (6)
  - Seizure cluster [Recovering/Resolving]
  - Somnolence [Recovering/Resolving]
  - Drug ineffective [Unknown]
  - Skin swelling [Unknown]
  - Alopecia [Unknown]
  - Lip swelling [Unknown]

NARRATIVE: CASE EVENT DATE: 2020
